FAERS Safety Report 16746613 (Version 3)
Quarter: 2022Q1

REPORT INFORMATION
  Report Type: Spontaneous
  Country: US (occurrence: US)
  Receive Date: 20190827
  Receipt Date: 20220330
  Transmission Date: 20220423
  Serious: No
  Sender: FDA-Public Use
  Company Number: US-PFIZER INC-2016519054

PATIENT
  Age: 60 Year
  Sex: Male
  Weight: 78.005 kg

DRUGS (2)
  1. VIAGRA [Suspect]
     Active Substance: SILDENAFIL CITRATE
     Indication: Erectile dysfunction
     Dosage: 0.5 DF, UNK, (HE WAS GIVEN 100MG AND HE CUT THE TABLETS IN HALF)
  2. VIAGRA [Suspect]
     Active Substance: SILDENAFIL CITRATE
     Dosage: 50 MG, AS NEEDED (^T^ PO (ORAL) 01 HR BEFORE INTERCOURSE AS NEED)
     Route: 048

REACTIONS (1)
  - No adverse event [Unknown]
